FAERS Safety Report 16396432 (Version 1)
Quarter: 2019Q2

REPORT INFORMATION
  Report Type: Spontaneous
  Country: US (occurrence: US)
  Receive Date: 20190605
  Receipt Date: 20190605
  Transmission Date: 20190711
  Serious: Yes (Hospitalization)
  Sender: FDA-Public Use
  Company Number: US-BAXTER-2019BAX011055

PATIENT
  Sex: Male

DRUGS (3)
  1. CIPROFLOXACIN INJECTION, USP [Suspect]
     Active Substance: CIPROFLOXACIN
     Indication: DYSURIA
     Route: 065
  2. CIPROFLOXACIN INJECTION, USP [Suspect]
     Active Substance: CIPROFLOXACIN
     Indication: PENIS DISORDER
  3. CIPROFLOXACIN INJECTION, USP [Suspect]
     Active Substance: CIPROFLOXACIN
     Indication: URINARY TRACT INFECTION
     Route: 065

REACTIONS (1)
  - Inappropriate antidiuretic hormone secretion [Recovered/Resolved]
